FAERS Safety Report 5285531-7 (Version None)
Quarter: 2007Q1

REPORT INFORMATION
  Report Type: 
  Country: None (occurrence: None)
  Receive Date: 20070328
  Receipt Date: 20070316
  Transmission Date: 20070707
  Serious: Yes (Life-Threatening, Other)
  Sender: FDA-Public Use
  Company Number: VER_0047_2007

PATIENT
  Age: 43 Year
  Sex: Male

DRUGS (4)
  1. EPINEPHRINE [Suspect]
     Indication: PRURITUS
     Dosage: 0.3 MG TWICE SC
     Route: 058
  2. EPINEPHRINE [Suspect]
     Indication: RASH
     Dosage: 0.3 MG TWICE SC
     Route: 058
  3. AMOXICILLIN [Concomitant]
  4. DIPHENHYDRAMINE HCL [Concomitant]

REACTIONS (1)
  - MYOCARDIAL INFARCTION [None]
